FAERS Safety Report 17597034 (Version 1)
Quarter: 2020Q1

REPORT INFORMATION
  Report Type: Spontaneous
  Country: FR (occurrence: FR)
  Receive Date: 20200330
  Receipt Date: 20200330
  Transmission Date: 20200409
  Serious: Yes (Disabling)
  Sender: FDA-Public Use
  Company Number: FR-GLAXOSMITHKLINE-FR2020048450

PATIENT
  Sex: Male

DRUGS (5)
  1. BETNEVAL [Concomitant]
     Active Substance: BETAMETHASONE VALERATE
     Indication: HYPERHIDROSIS
     Dosage: INCONNUE
     Route: 003
     Dates: start: 2013
  2. DIASEPTYL [Concomitant]
     Active Substance: CHLORHEXIDINE
     Indication: HYPERHIDROSIS
     Dosage: INCONNUE
     Route: 003
     Dates: start: 2013
  3. HYALURONATE SODIUM [Concomitant]
     Active Substance: HYALURONATE SODIUM
     Indication: HYPERHIDROSIS
     Dosage: INCONNUE
     Route: 003
     Dates: start: 2013
  4. BOTULINUM TOXIN TYPE A [Suspect]
     Active Substance: BOTULINUM TOXIN TYPE A
     Indication: HYPERHIDROSIS
     Dosage: UNK UNK, SINGLE
     Route: 065
     Dates: start: 2013, end: 2013
  5. SORIATANE [Suspect]
     Active Substance: ACITRETIN
     Indication: HYPERHIDROSIS
     Dosage: 1 DF, QD
     Route: 048
     Dates: start: 2013

REACTIONS (1)
  - Tendon disorder [Not Recovered/Not Resolved]

NARRATIVE: CASE EVENT DATE: 2017
